FAERS Safety Report 14679620 (Version 1)
Quarter: 2018Q1

REPORT INFORMATION
  Report Type: Spontaneous
  Country: US (occurrence: US)
  Receive Date: 20180324
  Receipt Date: 20180324
  Transmission Date: 20180509
  Serious: Yes (Other)
  Sender: FDA-Public Use
  Company Number: None

PATIENT
  Age: 18 Year
  Sex: Male
  Weight: 63 kg

DRUGS (6)
  1. PANTOPRAZOLE [Concomitant]
     Active Substance: PANTOPRAZOLE
  2. MAGIC MOUTH WASH [Suspect]
     Active Substance: ALUMINUM HYDROXIDE\DIMETHICONE\DIPHENHYDRAMINE\LIDOCAINE\MAGNESIUM HYDROXIDE
     Indication: GASTROOESOPHAGEAL REFLUX DISEASE
     Dosage: 5 SWISH AND SWALLOW; 3 TIMES A DAY ORAL?
     Route: 048
     Dates: start: 20171225, end: 20180324
  3. FLUTICASONE. [Concomitant]
     Active Substance: FLUTICASONE
  4. MAGIC MOUTH WASH [Suspect]
     Active Substance: ALUMINUM HYDROXIDE\DIMETHICONE\DIPHENHYDRAMINE\LIDOCAINE\MAGNESIUM HYDROXIDE
     Indication: OESOPHAGEAL ULCER
     Dosage: 5 SWISH AND SWALLOW; 3 TIMES A DAY ORAL?
     Route: 048
     Dates: start: 20171225, end: 20180324
  5. IBUPROFEN. [Concomitant]
     Active Substance: IBUPROFEN
  6. RANITIDINE. [Concomitant]
     Active Substance: RANITIDINE

REACTIONS (1)
  - Opiates positive [None]

NARRATIVE: CASE EVENT DATE: 20180222
